FAERS Safety Report 21654228 (Version 1)
Quarter: 2022Q4

REPORT INFORMATION
  Report Type: Spontaneous
  Country: PR (occurrence: PR)
  Receive Date: 20221129
  Receipt Date: 20221129
  Transmission Date: 20230113
  Serious: Yes (Hospitalization)
  Sender: FDA-Public Use
  Company Number: PR-MTPC-MTDA2022-0032013

PATIENT
  Sex: Male

DRUGS (3)
  1. RADICAVA [Suspect]
     Active Substance: EDARAVONE
     Indication: Amyotrophic lateral sclerosis
     Dosage: 5 MILLILITER, QD FOR 10 DAYS
     Route: 048
     Dates: start: 202208, end: 202208
  2. RADICAVA [Suspect]
     Active Substance: EDARAVONE
     Indication: Amyotrophic lateral sclerosis
     Dosage: 5 MILLILITER, QD FOR 10 DAYS
     Route: 048
     Dates: start: 202208, end: 202208
  3. RILUZOLE [Concomitant]
     Active Substance: RILUZOLE
     Indication: Product used for unknown indication
     Dosage: UNK
     Route: 065
     Dates: start: 202102

REACTIONS (2)
  - Respiratory disorder [Not Recovered/Not Resolved]
  - Disease progression [Not Recovered/Not Resolved]
